FAERS Safety Report 8249346 (Version 4)
Quarter: 2012Q4

REPORT INFORMATION
  Report Type: Report from Study
  Country: JP (occurrence: JP)
  Receive Date: 20111117
  Receipt Date: 20121029
  Transmission Date: 20130627
  Serious: Yes (Disabling)
  Sender: FDA-Public Use
  Company Number: JP-JNJFOC-20111105084

PATIENT
  Age: 64 Year
  Sex: Female
  Weight: 50 kg

DRUGS (8)
  1. INVEGA [Suspect]
     Indication: SCHIZOPHRENIA, PARANOID TYPE
     Route: 048
     Dates: start: 20110922
  2. INVEGA [Suspect]
     Indication: SCHIZOPHRENIA, PARANOID TYPE
     Route: 048
     Dates: start: 20110725, end: 20110921
  3. ROZEREM [Suspect]
     Indication: INSOMNIA
     Route: 048
  4. PARIET [Concomitant]
     Indication: DUODENAL ULCER
     Route: 048
  5. BENZALIN [Concomitant]
     Indication: INSOMNIA
     Route: 048
  6. AKINETON [Concomitant]
     Indication: PARKINSONISM
     Route: 048
  7. WYPAX [Concomitant]
     Indication: ANXIETY DISORDER
     Route: 048
     Dates: start: 20120227
  8. WYPAX [Concomitant]
     Indication: SCHIZOPHRENIA, PARANOID TYPE
     Route: 048
     Dates: start: 20120227

REACTIONS (4)
  - Fall [Recovered/Resolved]
  - Femur fracture [Recovered/Resolved]
  - Hyperprolactinaemia [Recovered/Resolved]
  - Extrapyramidal disorder [Recovering/Resolving]
